FAERS Safety Report 22108261 (Version 1)
Quarter: 2023Q1

REPORT INFORMATION
  Report Type: Spontaneous
  Country: US (occurrence: None)
  Receive Date: 20230316
  Receipt Date: 20230316
  Transmission Date: 20230417
  Serious: Yes (Other)
  Sender: FDA-Public Use
  Company Number: None

PATIENT
  Age: 65 Year
  Sex: Male
  Weight: 61.7 kg

DRUGS (1)
  1. REMDESIVIR [Suspect]
     Active Substance: REMDESIVIR
     Indication: COVID-19
     Dosage: FREQUENCY : DAILY;?
     Route: 042
     Dates: start: 20230310, end: 20230315

REACTIONS (5)
  - Screaming [None]
  - Communication disorder [None]
  - Confusional state [None]
  - Speech disorder [None]
  - Memory impairment [None]

NARRATIVE: CASE EVENT DATE: 20230316
